FAERS Safety Report 9001255 (Version 1)
Quarter: 2013Q1

REPORT INFORMATION
  Report Type: Spontaneous
  Country: US (occurrence: US)
  Receive Date: 20130107
  Receipt Date: 20130107
  Transmission Date: 20140127
  Serious: Yes (Hospitalization)
  Sender: FDA-Public Use
  Company Number: US-SHIRE-ALL1-2012-06581

PATIENT
  Age: 8 Year
  Sex: Male

DRUGS (1)
  1. VYVANSE [Suspect]
     Indication: PRODUCT USED FOR UNKNOWN INDICATION
     Dosage: 70 MG, ONE DOSE
     Route: 048
     Dates: start: 20121224, end: 20121224

REACTIONS (4)
  - Arrhythmia [Unknown]
  - Accidental exposure to product by child [Recovered/Resolved]
  - Agitation [Unknown]
  - Tachycardia [Unknown]
